FAERS Safety Report 14506590 (Version 1)
Quarter: 2018Q1

REPORT INFORMATION
  Report Type: Spontaneous
  Country: US (occurrence: US)
  Receive Date: 20180208
  Receipt Date: 20180208
  Transmission Date: 20180509
  Serious: No
  Sender: FDA-Public Use
  Company Number: US-TARO-2017TAR00900

PATIENT
  Age: 60 Year
  Sex: Male

DRUGS (1)
  1. NYSTATIN AND TRIAMCINOLONE ACETONIDE [Suspect]
     Active Substance: NYSTATIN\TRIAMCINOLONE ACETONIDE
     Dosage: UNK, ONCE
     Route: 061
     Dates: start: 20171017, end: 20171017

REACTIONS (2)
  - Migraine [Recovered/Resolved]
  - Perfume sensitivity [Recovered/Resolved]

NARRATIVE: CASE EVENT DATE: 20171017
